FAERS Safety Report 4831722-6 (Version None)
Quarter: 2005Q4

REPORT INFORMATION
  Report Type: 
  Country: None (occurrence: None)
  Receive Date: 20051116
  Receipt Date: 20051104
  Transmission Date: 20060501
  Serious: Yes (Other)
  Sender: FDA-Public Use
  Company Number: 2005-DE-04596GD

PATIENT
  Age: 41 Year
  Sex: Male

DRUGS (4)
  1. TRIMETHOPRIM-SULFAMETHOXAZOLE (INFRECTRIN (00566501/) [Suspect]
     Indication: PNEUMOCYSTIS JIROVECI PNEUMONIA
  2. PREDNISONE [Suspect]
     Indication: PNEUMOCYSTIS JIROVECI PNEUMONIA
  3. LORAZEPAM [Suspect]
     Indication: SEDATION
     Dosage: CONTINUOUS INFUSION, IV
     Route: 042
  4. PROPYLENE GLYCOL [Suspect]
     Dosage: CONTINUOUS INFUSION, IV
     Route: 042

REACTIONS (5)
  - ACUTE RESPIRATORY DISTRESS SYNDROME [None]
  - BLOOD BICARBONATE INCREASED [None]
  - BLOOD OSMOLARITY INCREASED [None]
  - HYPOTENSION [None]
  - SEPSIS [None]
